FAERS Safety Report 14253273 (Version 1)
Quarter: 2017Q4

REPORT INFORMATION
  Report Type: Report from Study
  Country: GB (occurrence: GB)
  Receive Date: 20171205
  Receipt Date: 20171205
  Transmission Date: 20180321
  Serious: Yes (Hospitalization)
  Sender: FDA-Public Use
  Company Number: GB-ASTRAZENECA-2017SF13994

PATIENT
  Age: 24201 Day
  Sex: Male

DRUGS (2)
  1. AZD5069 [Suspect]
     Active Substance: INVESTIGATIONAL PRODUCT
     Indication: ADENOCARCINOMA PANCREAS
     Route: 048
     Dates: start: 20171101, end: 20171101
  2. MEDI4736 [Suspect]
     Active Substance: DURVALUMAB
     Indication: ADENOCARCINOMA PANCREAS
     Route: 042
     Dates: start: 20171101, end: 20171101

REACTIONS (1)
  - Streptococcal sepsis [Recovered/Resolved]

NARRATIVE: CASE EVENT DATE: 20171104
